FAERS Safety Report 14784461 (Version 1)
Quarter: 2018Q2

REPORT INFORMATION
  Report Type: Spontaneous
  Country: JP (occurrence: JP)
  Receive Date: 20180420
  Receipt Date: 20180420
  Transmission Date: 20180711
  Serious: Yes (Other)
  Sender: FDA-Public Use
  Company Number: JP-GUERBET-JP-20180089

PATIENT

DRUGS (1)
  1. LIPIODOL [Suspect]
     Active Substance: ETHIODIZED OIL
     Indication: PHOTODYNAMIC DIAGNOSTIC PROCEDURE
     Route: 065

REACTIONS (3)
  - Inflammation [Unknown]
  - Laboratory test interference [Unknown]
  - Product use in unapproved indication [Unknown]
